FAERS Safety Report 4943423-4 (Version None)
Quarter: 2006Q1

REPORT INFORMATION
  Report Type: 
  Country: None (occurrence: None)
  Receive Date: 20060314
  Receipt Date: 20060312
  Transmission Date: 20060701
  Serious: Yes (Hospitalization, Other)
  Sender: FDA-Public Use
  Company Number: US-JNJFOC-20051000976

PATIENT
  Sex: Male
  Weight: 68.95 kg

DRUGS (9)
  1. REMICADE [Suspect]
     Route: 042
  2. REMICADE [Suspect]
     Route: 042
  3. REMICADE [Suspect]
     Route: 042
  4. REMICADE [Suspect]
     Route: 042
  5. REMICADE [Suspect]
     Indication: CROHN'S DISEASE
     Route: 042
  6. PREDNISONE [Concomitant]
     Dosage: TAPERING DOSE
  7. ASACOL [Concomitant]
     Dosage: 2 TABLETS, THREE TIMES A DAY
  8. BENTYL [Concomitant]
     Dosage: AS NEEDED
  9. FLAGYL [Concomitant]
     Indication: OVERGROWTH BACTERIAL

REACTIONS (8)
  - DEEP VEIN THROMBOSIS [None]
  - OVERGROWTH BACTERIAL [None]
  - PERICARDITIS [None]
  - PLEURAL EFFUSION [None]
  - PLEURISY [None]
  - PULMONARY EMBOLISM [None]
  - UPPER RESPIRATORY TRACT INFECTION [None]
  - WEIGHT DECREASED [None]
